FAERS Safety Report 11373292 (Version 1)
Quarter: 2015Q3

REPORT INFORMATION
  Report Type: Spontaneous
  Country: US (occurrence: US)
  Receive Date: 20150811
  Receipt Date: 20150811
  Transmission Date: 20151125
  Serious: No
  Sender: FDA-Public Use
  Company Number: US-ELI_LILLY_AND_COMPANY-US201209003918

PATIENT
  Age: 52 Year
  Sex: Male

DRUGS (2)
  1. CIALIS [Suspect]
     Active Substance: TADALAFIL
     Indication: ERECTILE DYSFUNCTION
     Dosage: 2.5 MG, QD
     Dates: start: 20120909
  2. CIALIS [Suspect]
     Active Substance: TADALAFIL
     Dosage: 0.5 DF, UNK

REACTIONS (3)
  - Nervousness [Unknown]
  - Anxiety [Unknown]
  - Intentional product misuse [Unknown]

NARRATIVE: CASE EVENT DATE: 20120910
